FAERS Safety Report 5590287-4 (Version None)
Quarter: 2008Q1

REPORT INFORMATION
  Report Type: 
  Country: None (occurrence: None)
  Receive Date: 20080114
  Receipt Date: 20080110
  Transmission Date: 20080703
  Serious: Yes (Death)
  Sender: FDA-Public Use
  Company Number: US-ASTRAZENECA-2008AC00073

PATIENT
  Age: 55 Year
  Sex: Male

DRUGS (4)
  1. QUETIAPINE [Suspect]
     Route: 048
  2. PROPOXYPHENE HYDROCHLORIDE [Suspect]
     Route: 048
  3. ETHANOL, BEVERAGE [Suspect]
     Route: 048
  4. CANNABINOIDS [Concomitant]

REACTIONS (5)
  - ARRHYTHMIA [None]
  - BRADYCARDIA [None]
  - CARDIAC ARREST [None]
  - COMPLETED SUICIDE [None]
  - HYPOTENSION [None]
